FAERS Safety Report 20797966 (Version 1)
Quarter: 2022Q2

REPORT INFORMATION
  Report Type: Spontaneous
  Country: US (occurrence: None)
  Receive Date: 20220506
  Receipt Date: 20220506
  Transmission Date: 20220721
  Serious: No
  Sender: FDA-Public Use
  Company Number: None

PATIENT
  Age: 64 Year
  Sex: Female

DRUGS (1)
  1. SILIQ [Suspect]
     Active Substance: BRODALUMAB
     Route: 058

REACTIONS (5)
  - Asthenia [None]
  - Nausea [None]
  - Vomiting [None]
  - Feeling abnormal [None]
  - Urticaria [None]

NARRATIVE: CASE EVENT DATE: 20220506
